FAERS Safety Report 5782190-1 (Version None)
Quarter: 2008Q2

REPORT INFORMATION
  Report Type: 
  Country: None (occurrence: None)
  Receive Date: 20080623
  Receipt Date: 20080616
  Transmission Date: 20081010
  Serious: Yes (Other)
  Sender: FDA-Public Use
  Company Number: DE-BAUSCH-2008BL002688

PATIENT
  Age: 56 Year
  Sex: Male

DRUGS (19)
  1. XALATAN /SWE/ [Suspect]
     Indication: DRUG USE FOR UNKNOWN INDICATION
     Route: 047
     Dates: start: 20071201
  2. TIM-OPHTAL 0.1% AUGENTROPFEN [Suspect]
     Indication: INTRAOCULAR PRESSURE INCREASED
     Route: 047
     Dates: start: 20080104
  3. DEXAGEL AUGENTROPFEN [Suspect]
     Indication: DRUG USE FOR UNKNOWN INDICATION
     Route: 047
     Dates: start: 20080104
  4. BOTOX [Concomitant]
     Indication: CORNEAL EPITHELIUM DEFECT
     Dates: start: 20080101, end: 20080101
  5. ACTIHAEMYL [Concomitant]
     Indication: DRUG USE FOR UNKNOWN INDICATION
     Route: 047
     Dates: start: 20080101
  6. KANAMYTREX [Concomitant]
     Indication: DRUG USE FOR UNKNOWN INDICATION
     Route: 047
     Dates: start: 20080101
  7. ACIC-OPHTAL [Concomitant]
     Indication: DRUG USE FOR UNKNOWN INDICATION
     Route: 047
     Dates: start: 20080102
  8. BORO-SCOPOL [Concomitant]
     Indication: DRUG USE FOR UNKNOWN INDICATION
     Route: 047
     Dates: start: 20080102
  9. CORNEREGEL [Concomitant]
     Indication: DRUG USE FOR UNKNOWN INDICATION
     Route: 047
     Dates: start: 20080104
  10. KANAMYTREX [Concomitant]
     Route: 047
     Dates: start: 20080130
  11. FLOXAL AUGENSALBE [Concomitant]
     Indication: DRUG USE FOR UNKNOWN INDICATION
     Route: 047
     Dates: start: 20080201
  12. TOBRAMAXIN [Concomitant]
     Indication: DRUG USE FOR UNKNOWN INDICATION
     Route: 047
     Dates: start: 20080201
  13. FLOXAL AUGENTROPFEN [Concomitant]
     Indication: DRUG USE FOR UNKNOWN INDICATION
     Route: 047
     Dates: start: 20080214
  14. BORO-SCOPOL [Concomitant]
     Route: 047
     Dates: start: 20080227
  15. FLOXAL AUGENTROPFEN [Concomitant]
     Route: 047
     Dates: start: 20080101
  16. TOBRAMAXIN [Concomitant]
     Route: 047
     Dates: start: 20080101
  17. TOBRADEX [Concomitant]
     Indication: DRUG USE FOR UNKNOWN INDICATION
     Route: 047
     Dates: start: 20080101
  18. OFTAQUIX /GFR/ [Concomitant]
     Indication: DRUG USE FOR UNKNOWN INDICATION
     Route: 047
     Dates: start: 20080101
  19. FLOXAL EDO AUGENTROPFEN [Concomitant]
     Indication: DRUG USE FOR UNKNOWN INDICATION
     Route: 047
     Dates: start: 20080101

REACTIONS (5)
  - CORNEAL DEPOSITS [None]
  - CORNEAL EROSION [None]
  - CORNEAL INFILTRATES [None]
  - DISEASE RECURRENCE [None]
  - TRANSPLANT [None]
